FAERS Safety Report 9696137 (Version 1)
Quarter: 2013Q4

REPORT INFORMATION
  Report Type: Spontaneous
  Country: US (occurrence: None)
  Receive Date: 20131115
  Receipt Date: 20131115
  Transmission Date: 20140711
  Serious: Yes (Other)
  Sender: FDA-Public Use
  Company Number: 2013-US-002873

PATIENT
  Age: 48 Year
  Sex: Female
  Weight: 49 kg

DRUGS (6)
  1. XYREM [Suspect]
     Indication: NARCOLEPSY
     Route: 048
     Dates: start: 200506, end: 2005
  2. DEXILANT(DEXLANSOPRAZOLE) [Concomitant]
  3. ADDERALL(AMFETAMINE ASPARTATE, AMFETAMINE SULFATE DEXAMFETAMINE SACCHARATE,DEXAMFETAMINE SULFATE) [Concomitant]
  4. HYDROCODONE(HYDROCODONE) [Concomitant]
  5. APAP(PARACETAMOL) [Concomitant]
  6. TUMS(CALCIUM CARBONATE, MAGNESIUM CARBONATE, MAGNESIUM TRISILICATE) [Concomitant]

REACTIONS (4)
  - Neck surgery [None]
  - Oedema [None]
  - Gastrooesophageal reflux disease [None]
  - Condition aggravated [None]
